FAERS Safety Report 9697374 (Version 1)
Quarter: 2013Q4

REPORT INFORMATION
  Report Type: Spontaneous
  Country: US (occurrence: None)
  Receive Date: 20131119
  Receipt Date: 20131119
  Transmission Date: 20140711
  Serious: No
  Sender: FDA-Public Use
  Company Number: None

PATIENT
  Age: 74 Year
  Sex: Female

DRUGS (2)
  1. TARCEVA 150 MG GENENTECH [Suspect]
     Route: 048
     Dates: start: 20130823, end: 20131111
  2. XELODA 500 MG GENENTECH [Suspect]
     Dosage: 4 TABS IN AM AND 4 TABS IN PM, X2 WEEKS @ 1 WEEK OFF, ORAL
     Route: 048
     Dates: start: 20131107

REACTIONS (1)
  - Diarrhoea [None]
